FAERS Safety Report 10377445 (Version 1)
Quarter: 2014Q3

REPORT INFORMATION
  Report Type: Spontaneous
  Country: JP (occurrence: JP)
  Receive Date: 20140812
  Receipt Date: 20140812
  Transmission Date: 20150326
  Serious: Yes (Death, Hospitalization, Other)
  Sender: FDA-Public Use
  Company Number: PHHY2013JP159884

PATIENT
  Age: 82 Year
  Sex: Male

DRUGS (4)
  1. TASIGNA [Suspect]
     Active Substance: NILOTINIB
     Dosage: 400 MG, DAILY
     Dates: start: 20130820, end: 20130824
  2. GLIVEC [Suspect]
     Active Substance: IMATINIB MESYLATE
     Indication: CHRONIC MYELOID LEUKAEMIA
  3. SPRYCEL [Suspect]
     Active Substance: DASATINIB
  4. TASIGNA [Suspect]
     Active Substance: NILOTINIB
     Indication: CHRONIC MYELOID LEUKAEMIA
     Dosage: 800 MG, DAILY
     Dates: start: 20130708, end: 20130720

REACTIONS (4)
  - Tumour lysis syndrome [Recovered/Resolved]
  - Drug intolerance [Unknown]
  - Blast cells present [Unknown]
  - Death [Fatal]

NARRATIVE: CASE EVENT DATE: 20130720
